FAERS Safety Report 4563320-6 (Version None)
Quarter: 2005Q1

REPORT INFORMATION
  Report Type: 
  Country: None (occurrence: None)
  Receive Date: 20050128
  Receipt Date: 20040106
  Transmission Date: 20050727
  Serious: No
  Sender: FDA-Public Use
  Company Number: US-GLAXOSMITHKLINE-A0491973A

PATIENT
  Sex: Female

DRUGS (1)
  1. BUPROPION HCL [Suspect]
     Indication: ILL-DEFINED DISORDER

REACTIONS (8)
  - AGITATION [None]
  - ANOREXIA [None]
  - ASTHENIA [None]
  - DRUG INEFFECTIVE [None]
  - INSOMNIA [None]
  - PARANOIA [None]
  - TREMOR [None]
  - WEIGHT DECREASED [None]
